FAERS Safety Report 19618862 (Version 2)
Quarter: 2022Q2

REPORT INFORMATION
  Report Type: Spontaneous
  Country: US (occurrence: None)
  Receive Date: 20210727
  Receipt Date: 20220621
  Transmission Date: 20220721
  Serious: No
  Sender: FDA-Public Use
  Company Number: US-ROCHE-2781400

PATIENT
  Age: 49 Year
  Sex: Male

DRUGS (2)
  1. XELODA [Suspect]
     Active Substance: CAPECITABINE
     Indication: Colon cancer
     Route: 048
     Dates: start: 202002, end: 202105
  2. OXALIPLATIN [Suspect]
     Active Substance: OXALIPLATIN
     Indication: Product used for unknown indication
     Route: 065

REACTIONS (6)
  - Neuropathy peripheral [Unknown]
  - Constipation [Unknown]
  - Feeling abnormal [Unknown]
  - Temperature intolerance [Unknown]
  - Hypoaesthesia oral [Unknown]
  - Fingerprint loss [Unknown]

NARRATIVE: CASE EVENT DATE: 20210222
